FAERS Safety Report 5708111-5 (Version None)
Quarter: 2008Q2

REPORT INFORMATION
  Report Type: 
  Country: None (occurrence: None)
  Receive Date: 20080417
  Receipt Date: 20080407
  Transmission Date: 20081010
  Serious: Yes (Other)
  Sender: FDA-Public Use
  Company Number: US-ELI_LILLY_AND_COMPANY-US200804003225

PATIENT
  Sex: Male

DRUGS (1)
  1. CIALIS [Suspect]
     Indication: ERECTILE DYSFUNCTION
     Dates: end: 20070713

REACTIONS (1)
  - VISION BLURRED [None]
